FAERS Safety Report 6252622-3 (Version None)
Quarter: 2009Q2

REPORT INFORMATION
  Report Type: 
  Country: None (occurrence: None)
  Receive Date: 20090629
  Receipt Date: 20090629
  Transmission Date: 20091009
  Serious: Yes (Hospitalization)
  Sender: FDA-Public Use
  Company Number: None

PATIENT
  Age: 61 Year
  Sex: Male
  Weight: 100 kg

DRUGS (9)
  1. AZITHROMYCIN [Suspect]
     Indication: PNEUMONIA
     Dosage: 500 MG DAILY IV DRIP
     Route: 041
     Dates: start: 20090605, end: 20090609
  2. AMIODARONE 450 MG/9ML BIONICPHARMA [Suspect]
     Indication: ATRIAL FIBRILLATION
     Dosage: 700 MG DAILY IV DRIP
     Route: 041
     Dates: start: 20090604, end: 20090606
  3. PIPERACILLIN SODIUM AND TAZOBACTAM SODIUM [Concomitant]
  4. METOPROLOL [Concomitant]
  5. ESOMEPRAZOLE MAGNESIUM [Concomitant]
  6. DIGOXIN [Concomitant]
  7. FUROSEMIDE [Concomitant]
  8. WARFARIN [Concomitant]
  9. LORAZEPAM [Concomitant]

REACTIONS (1)
  - LIVER FUNCTION TEST ABNORMAL [None]
